FAERS Safety Report 23928533 (Version 1)
Quarter: 2024Q2

REPORT INFORMATION
  Report Type: Spontaneous
  Country: US (occurrence: US)
  Receive Date: 20240531
  Receipt Date: 20240531
  Transmission Date: 20240716
  Serious: No
  Sender: FDA-Public Use
  Company Number: US-RADIUS HEALTH INC.-2023US006620

PATIENT
  Sex: Female

DRUGS (1)
  1. TYMLOS [Suspect]
     Active Substance: ABALOPARATIDE
     Indication: Product used for unknown indication
     Dosage: 80 MICROGRAM, QD
     Route: 058

REACTIONS (8)
  - Feeling abnormal [Unknown]
  - Product dose omission in error [Unknown]
  - Head discomfort [Unknown]
  - Therapy interrupted [Unknown]
  - Injection site haemorrhage [Unknown]
  - Product storage error [Unknown]
  - Product dose omission issue [Unknown]
  - Product quality issue [Unknown]
